FAERS Safety Report 8557703-7 (Version None)
Quarter: 2012Q3

REPORT INFORMATION
  Report Type: 
  Country: None (occurrence: None)
  Receive Date: 20120801
  Receipt Date: 20120727
  Transmission Date: 20120928
  Serious: No
  Sender: FDA-Public Use
  Company Number: US-PFIZER INC-2012182928

PATIENT
  Age: 56 Year
  Sex: Male

DRUGS (1)
  1. VIAGRA [Suspect]
     Dosage: UNK

REACTIONS (5)
  - SCROTAL DISORDER [None]
  - BURNING SENSATION [None]
  - ERECTION INCREASED [None]
  - TESTICULAR DISORDER [None]
  - DYSPEPSIA [None]
